FAERS Safety Report 8261856 (Version 4)
Quarter: 2012Q4

REPORT INFORMATION
  Report Type: 
  Country: FR (occurrence: FR)
  Receive Date: 20111123
  Receipt Date: 20121212
  Transmission Date: 20130627
  Serious: Yes (Disabling, Other)
  Sender: FDA-Public Use
  Company Number: PHHY2011FR101980

PATIENT
  Age: 71 Year
  Sex: Female
  Weight: 50 kg

DRUGS (3)
  1. ACLASTA [Suspect]
     Indication: OSTEOPOROSIS
     Dosage: UKN, UNK, yearly once
     Route: 042
     Dates: start: 20111115
  2. ACLASTA [Suspect]
     Dosage: UNK UKN, UNK, yearly once
     Route: 042
     Dates: start: 20121105
  3. ST. JOHN^S WORT [Concomitant]

REACTIONS (17)
  - Myalgia [Recovered/Resolved]
  - Sciatica [Unknown]
  - Insomnia [Unknown]
  - Pyrexia [Recovered/Resolved]
  - Bone pain [Not Recovered/Not Resolved]
  - Chest pain [Unknown]
  - Middle insomnia [Not Recovered/Not Resolved]
  - Pain [Not Recovered/Not Resolved]
  - Arthralgia [Not Recovered/Not Resolved]
  - Joint stiffness [Not Recovered/Not Resolved]
  - Musculoskeletal stiffness [Not Recovered/Not Resolved]
  - Musculoskeletal chest pain [Recovered/Resolved]
  - Pain in jaw [Unknown]
  - Dizziness [Unknown]
  - Nausea [Recovered/Resolved]
  - Malaise [Recovered/Resolved]
  - Chills [Unknown]
